FAERS Safety Report 25508338 (Version 1)
Quarter: 2025Q3

REPORT INFORMATION
  Report Type: Report from Study
  Country: US (occurrence: US)
  Receive Date: 20250703
  Receipt Date: 20250703
  Transmission Date: 20251021
  Serious: Yes (Other)
  Sender: ABBVIE
  Company Number: US-ABBVIE-6351872

PATIENT
  Age: 66 Year
  Sex: Female

DRUGS (1)
  1. RINVOQ [Suspect]
     Active Substance: UPADACITINIB
     Indication: Axial spondyloarthritis
     Dosage: FROM STRENGTH 15 MILLIGRAM
     Route: 048
     Dates: start: 20250407, end: 20250620

REACTIONS (4)
  - Cerebrovascular accident [Unknown]
  - Speech disorder [Not Recovered/Not Resolved]
  - Magnetic resonance imaging head abnormal [Unknown]
  - White matter lesion [Unknown]

NARRATIVE: CASE EVENT DATE: 20250101
